FAERS Safety Report 22613927 (Version 1)
Quarter: 2023Q2

REPORT INFORMATION
  Report Type: Spontaneous
  Country: US (occurrence: US)
  Receive Date: 20230619
  Receipt Date: 20230619
  Transmission Date: 20230721
  Serious: Yes (Hospitalization)
  Sender: FDA-Public Use
  Company Number: US-CHEPLA-2023007169

PATIENT
  Age: 69 Year
  Sex: Male

DRUGS (8)
  1. CLONAZEPAM [Suspect]
     Active Substance: CLONAZEPAM
     Indication: Anxiety
     Dosage: TID, FROM 6 MONTHS?DAILY DOSE: 3 MILLIGRAM
     Route: 048
  2. CLONAZEPAM [Suspect]
     Active Substance: CLONAZEPAM
     Indication: Muscle spasms
     Dosage: TID, FROM 6 MONTHS?DAILY DOSE: 3 MILLIGRAM
     Route: 048
  3. INGREZZA [Suspect]
     Active Substance: VALBENAZINE
     Indication: Tardive dyskinesia
     Dosage: SINCE 1 YEAR?DAILY DOSE: 80 MILLIGRAM
     Route: 048
     Dates: start: 202201
  4. COGENTIN [Concomitant]
     Active Substance: BENZTROPINE MESYLATE
     Indication: Dystonia
  5. LISINOPRIL [Concomitant]
     Active Substance: LISINOPRIL
     Indication: Hypertension
  6. SERTRALINE [Concomitant]
     Active Substance: SERTRALINE HYDROCHLORIDE
     Indication: Depression
  7. ZYPREXA [Concomitant]
     Active Substance: OLANZAPINE
  8. AMANTADINE [Concomitant]
     Active Substance: AMANTADINE

REACTIONS (2)
  - Radial nerve palsy [Recovered/Resolved with Sequelae]
  - Sedation [Recovered/Resolved with Sequelae]

NARRATIVE: CASE EVENT DATE: 20220916
